FAERS Safety Report 21537364 (Version 1)
Quarter: 2022Q4

REPORT INFORMATION
  Report Type: Spontaneous
  Country: MX (occurrence: MX)
  Receive Date: 20221101
  Receipt Date: 20221101
  Transmission Date: 20230113
  Serious: Yes (Hospitalization, Other)
  Sender: FDA-Public Use
  Company Number: MX-FreseniusKabi-FK202214563

PATIENT
  Age: 53 Year
  Sex: Female

DRUGS (2)
  1. PROPOFOL [Suspect]
     Active Substance: PROPOFOL
     Indication: Ureteroscopy
     Dosage: THE ANESTHESIOLOGIST PRESENT THAT DAY ADMITTED TO THE REUSE OF PROPOFOL ON 17/09/2019 DUE TO A SUDDE
     Route: 042
     Dates: start: 20190917, end: 20190917
  2. PROPOFOL [Suspect]
     Active Substance: PROPOFOL
     Indication: Induction and maintenance of anaesthesia

REACTIONS (4)
  - Sepsis [Recovered/Resolved]
  - Product contamination [Unknown]
  - Inadequate aseptic technique in use of product [Unknown]
  - Multiple use of single-use product [Unknown]
